FAERS Safety Report 19034143 (Version 1)
Quarter: 2021Q1

REPORT INFORMATION
  Report Type: Spontaneous
  Country: DE (occurrence: DE)
  Receive Date: 20210320
  Receipt Date: 20210320
  Transmission Date: 20210420
  Serious: Yes (Life-Threatening, Hospitalization, Other)
  Sender: FDA-Public Use
  Company Number: DE-GRANULES-DE-2021GRALIT00193

PATIENT
  Age: 6 Year
  Sex: Male

DRUGS (7)
  1. ACETYLSALICYLIC ACID [Interacting]
     Active Substance: ASPIRIN
     Indication: CORONARY ARTERY DISSECTION
     Route: 065
  2. PRASUGREL. [Interacting]
     Active Substance: PRASUGREL
     Route: 065
  3. METHYLPHENIDATE HYDROCHLORIDE USP [Suspect]
     Active Substance: METHYLPHENIDATE HYDROCHLORIDE
     Route: 065
  4. BISOPROLOL [Interacting]
     Active Substance: BISOPROLOL
     Route: 065
  5. LISINOPRIL. [Interacting]
     Active Substance: LISINOPRIL
     Route: 065
  6. EPTIFIBATIDE. [Interacting]
     Active Substance: EPTIFIBATIDE
     Indication: CORONARY ARTERY DISSECTION
     Route: 065
  7. METHYLPHENIDATE HYDROCHLORIDE USP [Suspect]
     Active Substance: METHYLPHENIDATE HYDROCHLORIDE
     Indication: ATTENTION DEFICIT HYPERACTIVITY DISORDER
     Dosage: 0.14 MG/KG BODY WEIGHT
     Route: 048

REACTIONS (2)
  - Coronary artery dissection [Recovered/Resolved]
  - Acute myocardial infarction [Recovered/Resolved]
